FAERS Safety Report 14367620 (Version 1)
Quarter: 2018Q1

REPORT INFORMATION
  Report Type: Spontaneous
  Country: PL (occurrence: PL)
  Receive Date: 20180108
  Receipt Date: 20180108
  Transmission Date: 20180509
  Serious: Yes (Disabling)
  Sender: FDA-Public Use
  Company Number: None

PATIENT
  Sex: Female
  Weight: 60 kg

DRUGS (13)
  1. NOVATE [Suspect]
     Active Substance: CLOBETASOL PROPIONATE
  2. DEXAMYTREX [Suspect]
     Active Substance: DEXAMETHASONE SODIUM PHOSPHATE\GENTAMICIN SULFATE
  3. ELOSONE (MOMETASONE FUROATE) [Suspect]
     Active Substance: MOMETASONE FUROATE
  4. SINGULAIR [Concomitant]
     Active Substance: MONTELUKAST SODIUM
  5. ELOCOME [Suspect]
     Active Substance: MOMETASONE FUROATE
     Indication: ECZEMA
     Route: 061
  6. BEDICORT (BETAMETHASONE DIPROPIONATE\GENTAMICIN SULFATE) [Suspect]
     Active Substance: BETAMETHASONE DIPROPIONATE\GENTAMICIN SULFATE
  7. ELOCOME [Suspect]
     Active Substance: MOMETASONE FUROATE
     Indication: DERMATITIS ATOPIC
     Route: 061
  8. CORTINEFF [Suspect]
     Active Substance: FLUDROCORTISONE
  9. HYDROXYZINE [Concomitant]
     Active Substance: HYDROXYZINE HYDROCHLORIDE
  10. VITAMIN D [Concomitant]
     Active Substance: CHOLECALCIFEROL
  11. CITIBAX [Concomitant]
  12. ZOMIREN [Concomitant]
  13. RUPAFIN [Concomitant]
     Active Substance: RUPATADINE FUMARATE

REACTIONS (2)
  - Dermatitis exfoliative generalised [None]
  - Red man syndrome [None]

NARRATIVE: CASE EVENT DATE: 20141025
